FAERS Safety Report 5545377-9 (Version None)
Quarter: 2007Q4

REPORT INFORMATION
  Report Type: 
  Country: None (occurrence: None)
  Receive Date: 20071211
  Receipt Date: 20071129
  Transmission Date: 20080405
  Serious: Yes (Other)
  Sender: FDA-Public Use
  Company Number: FR-JNJFOC-20071201998

PATIENT
  Age: 44 Year
  Sex: Female

DRUGS (5)
  1. ACETAMINOPHEN AND TRAMADOL HCL [Suspect]
     Indication: ARTHRALGIA
     Dosage: 325/37.5MG  2 TO 3 TIMES A DAY
     Route: 048
  2. PARACETAMOL [Suspect]
     Indication: ARTHRALGIA
     Route: 048
  3. DEXTROPROPOXYPHENE [Suspect]
     Indication: DRUG USE FOR UNKNOWN INDICATION
     Route: 048
  4. VOLTAREN [Concomitant]
     Route: 048
  5. NAPROXEN [Concomitant]
     Route: 048

REACTIONS (1)
  - AGRANULOCYTOSIS [None]
